FAERS Safety Report 8228882-6 (Version None)
Quarter: 2012Q1

REPORT INFORMATION
  Report Type: 
  Country: None (occurrence: None)
  Receive Date: 20120322
  Receipt Date: 20120321
  Transmission Date: 20120608
  Serious: Yes (Other)
  Sender: FDA-Public Use
  Company Number: CN-BAYER-2012-027722

PATIENT
  Age: 45 Year

DRUGS (2)
  1. NEXAVAR [Suspect]
     Dosage: UNK
     Dates: start: 20120301
  2. NEXAVAR [Suspect]
     Indication: HEPATIC NEOPLASM MALIGNANT
     Dosage: 2 DF, BID
     Dates: start: 20120215, end: 20120220

REACTIONS (3)
  - DECREASED APPETITE [None]
  - TETANY [None]
  - JAUNDICE [None]
